FAERS Safety Report 13689469 (Version 1)
Quarter: 2017Q2

REPORT INFORMATION
  Report Type: Spontaneous
  Country: JP (occurrence: JP)
  Receive Date: 20170626
  Receipt Date: 20170626
  Transmission Date: 20170830
  Serious: Yes (Other)
  Sender: FDA-Public Use
  Company Number: JP-PFIZER INC-2017271084

PATIENT
  Age: 56 Year
  Sex: Male

DRUGS (2)
  1. SUNITINIB MALATE. [Suspect]
     Active Substance: SUNITINIB MALATE
     Indication: METASTASES TO LUNG
     Dosage: UNK
     Dates: start: 201007
  2. TEMSIROLIMUS [Suspect]
     Active Substance: TEMSIROLIMUS

REACTIONS (4)
  - Hypertension [Unknown]
  - Renal cyst infection [Unknown]
  - Thrombocytopenia [Unknown]
  - Anaemia [Unknown]
